FAERS Safety Report 26015432 (Version 1)
Quarter: 2025Q4

REPORT INFORMATION
  Report Type: Spontaneous
  Country: US (occurrence: US)
  Receive Date: 20251109
  Receipt Date: 20251109
  Transmission Date: 20260118
  Serious: No
  Sender: ELI LILLY AND COMPANY
  Company Number: US-ELI_LILLY_AND_COMPANY-US202510012347

PATIENT
  Age: 71 Year
  Sex: Male

DRUGS (11)
  1. ZEPBOUND [Suspect]
     Active Substance: TIRZEPATIDE
     Indication: Weight control
     Dosage: 5 MG, UNKNOWN
     Route: 065
     Dates: start: 20250904
  2. ZEPBOUND [Suspect]
     Active Substance: TIRZEPATIDE
     Indication: Weight control
     Dosage: 5 MG, UNKNOWN
     Route: 065
     Dates: start: 20250904
  3. ZEPBOUND [Suspect]
     Active Substance: TIRZEPATIDE
     Indication: Weight control
     Dosage: 5 MG, UNKNOWN
     Route: 065
     Dates: start: 20250904
  4. ZEPBOUND [Suspect]
     Active Substance: TIRZEPATIDE
     Indication: Weight control
     Dosage: 5 MG, UNKNOWN
     Route: 065
     Dates: start: 20250904
  5. ZEPBOUND [Suspect]
     Active Substance: TIRZEPATIDE
     Indication: Apnoea
  6. ZEPBOUND [Suspect]
     Active Substance: TIRZEPATIDE
     Indication: Apnoea
  7. ZEPBOUND [Suspect]
     Active Substance: TIRZEPATIDE
     Indication: Apnoea
  8. ZEPBOUND [Suspect]
     Active Substance: TIRZEPATIDE
     Indication: Apnoea
  9. CRESTOR [Concomitant]
     Active Substance: ROSUVASTATIN CALCIUM
     Indication: Blood pressure increased
  10. COREG [Concomitant]
     Active Substance: CARVEDILOL
     Indication: Blood pressure increased
  11. COZAAR [Concomitant]
     Active Substance: LOSARTAN POTASSIUM
     Indication: Product used for unknown indication

REACTIONS (1)
  - Incorrect dose administered [Unknown]

NARRATIVE: CASE EVENT DATE: 20251008
